FAERS Safety Report 7521647-X (Version None)
Quarter: 2011Q2

REPORT INFORMATION
  Report Type: 
  Country: None (occurrence: None)
  Receive Date: 20110524
  Receipt Date: 20110509
  Transmission Date: 20111010
  Serious: Yes (Other)
  Sender: FDA-Public Use
  Company Number: HALL-103-AE

PATIENT
  Age: 70 Year
  Sex: Male
  Weight: 69.8539 kg

DRUGS (6)
  1. VTAMIN D + CALCIUM [Concomitant]
  2. SULFAMETHOXAZOLE AND TRIMETHOPRIM [Suspect]
     Indication: PROSTATITIS
     Dosage: 1 TABLET BID, ORAL
     Route: 048
     Dates: start: 20110329, end: 20110421
  3. LOSARTAN POTASSIUM [Concomitant]
  4. TOPOROL [Concomitant]
  5. METFORMIN HCL [Concomitant]
  6. PREVACID [Concomitant]

REACTIONS (2)
  - HEPATITIS C [None]
  - HEPATIC STEATOSIS [None]
